FAERS Safety Report 16237698 (Version 1)
Quarter: 2019Q2

REPORT INFORMATION
  Report Type: Spontaneous
  Country: US (occurrence: US)
  Receive Date: 20190424
  Receipt Date: 20190424
  Transmission Date: 20190711
  Serious: Yes (Hospitalization)
  Sender: FDA-Public Use
  Company Number: None

PATIENT
  Age: 56 Year
  Sex: Female

DRUGS (1)
  1. TALTZ [Suspect]
     Active Substance: IXEKIZUMAB
     Indication: PSORIASIS
     Dosage: 160 MG/ML DAY 1 SUBCUTANEOUS
     Route: 058
     Dates: start: 20190222

REACTIONS (3)
  - Arterial occlusive disease [None]
  - Therapy cessation [None]
  - Stent placement [None]

NARRATIVE: CASE EVENT DATE: 20190315
